FAERS Safety Report 24270584 (Version 2)
Quarter: 2024Q3

REPORT INFORMATION
  Report Type: Report from Study
  Country: US (occurrence: US)
  Receive Date: 20240831
  Receipt Date: 20240906
  Transmission Date: 20241017
  Serious: Yes (Hospitalization, Other)
  Sender: ABBVIE
  Company Number: US-ABBVIE-5897569

PATIENT
  Sex: Male
  Weight: 84.368 kg

DRUGS (5)
  1. CREON [Suspect]
     Active Substance: PANCRELIPASE AMYLASE\PANCRELIPASE LIPASE\PANCRELIPASE PROTEASE
     Indication: Pancreatic failure
     Route: 048
     Dates: start: 202404, end: 202406
  2. CREON [Suspect]
     Active Substance: PANCRELIPASE AMYLASE\PANCRELIPASE LIPASE\PANCRELIPASE PROTEASE
     Indication: Pancreatic failure
     Dosage: LAST ADMIN DATE-2024
     Route: 048
     Dates: start: 202403
  3. CREON [Suspect]
     Active Substance: PANCRELIPASE AMYLASE\PANCRELIPASE LIPASE\PANCRELIPASE PROTEASE
     Indication: Pancreatic failure
     Dosage: TWO OR THREE CAPSULES WITH EACH MEAL DEPENDING ON THE AMOUNT. AND ONE CAPSULE WITH EACH SNACK
     Route: 048
     Dates: start: 202406
  4. TRAZODONE [Concomitant]
     Active Substance: TRAZODONE HYDROCHLORIDE
     Indication: Sleep disorder therapy
  5. NEURONTIN [Concomitant]
     Active Substance: GABAPENTIN
     Indication: Back pain

REACTIONS (8)
  - Intestinal dilatation [Unknown]
  - Haemoglobin decreased [Unknown]
  - Gastrooesophageal reflux disease [Unknown]
  - Abdominal distension [Not Recovered/Not Resolved]
  - Nausea [Recovered/Resolved]
  - Intestinal obstruction [Unknown]
  - Pancreatic failure [Unknown]
  - Protein total decreased [Unknown]

NARRATIVE: CASE EVENT DATE: 20240101
